FAERS Safety Report 9179247 (Version 1)
Quarter: 2013Q1

REPORT INFORMATION
  Report Type: Spontaneous
  Country: FR (occurrence: FR)
  Receive Date: 20130321
  Receipt Date: 20130321
  Transmission Date: 20140127
  Serious: Yes (Other)
  Sender: FDA-Public Use
  Company Number: FR-GLAXOSMITHKLINE-B0874854A

PATIENT
  Sex: Female

DRUGS (2)
  1. DEROXAT [Suspect]
     Indication: SOCIAL PHOBIA
     Dosage: 20MG PER DAY
     Route: 048
  2. LYSANXIA [Concomitant]
     Indication: SOCIAL PHOBIA
     Route: 065

REACTIONS (2)
  - Glaucoma [Recovered/Resolved]
  - Anxiety [Recovered/Resolved]
